FAERS Safety Report 16518577 (Version 2)
Quarter: 2019Q3

REPORT INFORMATION
  Report Type: Report from Study
  Country: US (occurrence: US)
  Receive Date: 20190702
  Receipt Date: 20190726
  Transmission Date: 20191004
  Serious: Yes (Hospitalization)
  Sender: FDA-Public Use
  Company Number: US-JNJFOC-20190512715

PATIENT
  Age: 71 Year
  Sex: Female

DRUGS (12)
  1. IRBESARTAN. [Concomitant]
     Active Substance: IRBESARTAN
  2. IMBRUVICA [Suspect]
     Active Substance: IBRUTINIB
     Indication: CHRONIC LYMPHOCYTIC LEUKAEMIA
     Dosage: 420 MG, QD
     Route: 048
     Dates: start: 20190426
  3. RITUXAN [Suspect]
     Active Substance: RITUXIMAB
     Indication: WALDENSTROM^S MACROGLOBULINAEMIA
     Dosage: UNK
     Route: 041
  4. TYLENOL [Concomitant]
     Active Substance: ACETAMINOPHEN
  5. ACYCLOVIR. [Concomitant]
     Active Substance: ACYCLOVIR
  6. PROCHLORPERAZINE MALEATE. [Concomitant]
     Active Substance: PROCHLORPERAZINE MALEATE
  7. IMBRUVICA [Suspect]
     Active Substance: IBRUTINIB
     Indication: WALDENSTROM^S MACROGLOBULINAEMIA
     Dosage: 420 MG, QD
     Route: 048
     Dates: start: 20190405, end: 20190715
  8. HYDROCHLOROTHIAZIDE. [Concomitant]
     Active Substance: HYDROCHLOROTHIAZIDE
  9. LEVEMIR [Concomitant]
     Active Substance: INSULIN DETEMIR
  10. VENTOLIN HFA [Concomitant]
     Active Substance: ALBUTEROL SULFATE
  11. VICTOZA [Concomitant]
     Active Substance: LIRAGLUTIDE
  12. AMLODIPINE BESYLATE. [Concomitant]
     Active Substance: AMLODIPINE BESYLATE

REACTIONS (7)
  - Arthralgia [Not Recovered/Not Resolved]
  - Fatigue [Recovering/Resolving]
  - Pain in extremity [Unknown]
  - Myalgia [Not Recovered/Not Resolved]
  - Musculoskeletal pain [Unknown]
  - Peripheral swelling [Unknown]
  - Epistaxis [Not Recovered/Not Resolved]

NARRATIVE: CASE EVENT DATE: 201904
